FAERS Safety Report 12732469 (Version 1)
Quarter: 2016Q3

REPORT INFORMATION
  Report Type: Spontaneous
  Country: US (occurrence: US)
  Receive Date: 20160910
  Receipt Date: 20160910
  Transmission Date: 20161109
  Serious: Yes (Disabling)
  Sender: FDA-Public Use
  Company Number: None

PATIENT
  Age: 4 Year
  Sex: Female
  Weight: 19.8 kg

DRUGS (4)
  1. TRIAMCINOLONE 1% [Suspect]
     Active Substance: TRIAMCINOLONE
     Indication: ECZEMA
  2. CHILDRENS BENADRYL ALLERGY [Concomitant]
     Active Substance: DIPHENHYDRAMINE HYDROCHLORIDE
  3. CHILDRENS ADVIL [Concomitant]
     Active Substance: IBUPROFEN
  4. HYDOXIZINE [Concomitant]

REACTIONS (6)
  - Insomnia [None]
  - Withdrawal syndrome [None]
  - Erythema [None]
  - Pruritus [None]
  - Skin exfoliation [None]
  - Chills [None]

NARRATIVE: CASE EVENT DATE: 20160823
